FAERS Safety Report 11097766 (Version 2)
Quarter: 2015Q2

REPORT INFORMATION
  Report Type: Spontaneous
  Country: US (occurrence: US)
  Receive Date: 20150507
  Receipt Date: 20150526
  Transmission Date: 20150821
  Serious: Yes (Hospitalization)
  Sender: FDA-Public Use
  Company Number: US-PFIZER INC-2015143223

PATIENT
  Age: 15 Year
  Sex: Female
  Weight: 57 kg

DRUGS (25)
  1. BACTRIM [Concomitant]
     Active Substance: SULFAMETHOXAZOLE\TRIMETHOPRIM
     Dosage: 1 DF, DAILY
     Dates: start: 20070312
  2. ERGOCALCIFEROL. [Concomitant]
     Active Substance: ERGOCALCIFEROL
     Dosage: 50000 IU, WEEKLY (50,000 UNITS X 12 WEEKS)
     Dates: start: 20150401
  3. PREDNISONE. [Concomitant]
     Active Substance: PREDNISONE
     Dosage: 25 MG, 2X/DAY (5 MG ORAL TABLET - 5 TABS ORALLY 2 TIMES A DAY)
     Dates: start: 20150410, end: 20150412
  4. RAPAMUNE [Suspect]
     Active Substance: SIROLIMUS
     Indication: PROPHYLAXIS AGAINST TRANSPLANT REJECTION
     Dosage: 6 MG, 1X/DAY (2MG TAB X 3)
     Route: 048
     Dates: start: 200705
  5. RAPAMUNE [Suspect]
     Active Substance: SIROLIMUS
     Dosage: 5 MG, DAILY
     Dates: start: 20150430
  6. ATENOLOL. [Concomitant]
     Active Substance: ATENOLOL
     Dosage: 50 MG, DAILY
     Dates: start: 20150422
  7. ALLEGRA [Concomitant]
     Active Substance: FEXOFENADINE HYDROCHLORIDE
     Dosage: UNK, AS NEEDED
     Route: 048
     Dates: start: 20090721
  8. MIRALAX [Concomitant]
     Active Substance: POLYETHYLENE GLYCOL 3350
     Indication: CONSTIPATION
     Dosage: 17 G, AS NEEDED (ONCE A DAY, AS NEEDED)
     Route: 048
     Dates: start: 20120220
  9. ACETAMINOPHEN. [Concomitant]
     Active Substance: ACETAMINOPHEN
     Indication: PAIN
     Dosage: 325 MG, AS NEEDED (2 TAB(S) ORALLY EVERY 6 HOURS, AS NEEDED)
     Route: 048
  10. PREDNISONE. [Concomitant]
     Active Substance: PREDNISONE
     Dosage: 30 MG, 2X/DAY (5 MG ORAL TABLET - 6 TABS ORALLY 2 TIMES A DAY)
     Route: 048
     Dates: start: 20150408, end: 20150409
  11. LEXAPRO [Concomitant]
     Active Substance: ESCITALOPRAM OXALATE
     Dosage: 10 MG, DAILY (IN THE EVENING)
     Route: 048
     Dates: start: 20141223
  12. AMLODIPINE [Concomitant]
     Active Substance: AMLODIPINE BESYLATE
     Dosage: 5 MG, DAILY
     Dates: start: 20150514
  13. IMMUNOGLOBULIN [Concomitant]
     Active Substance: HUMAN IMMUNOGLOBULIN G
     Dosage: UNK (HOLD)
     Dates: start: 20140529
  14. BACTRIM [Concomitant]
     Active Substance: SULFAMETHOXAZOLE\TRIMETHOPRIM
     Dosage: 1 DF, DAILY
     Dates: start: 20070312
  15. PRILOSEC [Concomitant]
     Active Substance: OMEPRAZOLE MAGNESIUM
     Dosage: 20 MG, 2X/DAY (20 MG PEDS GI)
     Route: 048
     Dates: start: 20140128
  16. SODIUM BICARBONATE. [Concomitant]
     Active Substance: SODIUM BICARBONATE
     Dosage: 1300 MG, 2X/DAY
     Dates: start: 20070313
  17. BACTRIM [Concomitant]
     Active Substance: SULFAMETHOXAZOLE\TRIMETHOPRIM
     Dosage: UNK, 2X/DAY (400 MG-80 MG, EVERY 12 HOURS)
     Route: 048
  18. PREDNISONE. [Concomitant]
     Active Substance: PREDNISONE
     Dosage: 20 MG, 2X/DAY (5 MG ORAL TABLET - 4 TABS ORALLY 2 TIMES A DAY)
     Dates: start: 20150413, end: 20150420
  19. CLOTRIMAZOLE. [Concomitant]
     Active Substance: CLOTRIMAZOLE
     Dosage: 10 MG, 4X/DAY
  20. ATORVASTATIN [Concomitant]
     Active Substance: ATORVASTATIN
     Dosage: 40 MG, DAILY
     Dates: start: 20150414
  21. CELEXA [Concomitant]
     Active Substance: CITALOPRAM HYDROBROMIDE
     Dosage: 10 MG, DAILY (IN THE MORNING)
     Route: 048
     Dates: start: 20141127
  22. FERROUS SULFATE [Concomitant]
     Active Substance: FERROUS SULFATE\FERROUS SULFATE, DRIED
     Dosage: 325 MG, 2X/DAY
     Route: 048
     Dates: start: 20100617
  23. MYFORTIC [Concomitant]
     Active Substance: MYCOPHENOLATE SODIUM
     Dosage: 720 MG, 1X/DAY (EVERY MORNING)
     Route: 048
     Dates: start: 20130605
  24. ERGOCALCIFEROL. [Concomitant]
     Active Substance: ERGOCALCIFEROL
     Dosage: 2000 IU, HOLD
     Dates: start: 20150407
  25. FISH OIL [Concomitant]
     Active Substance: FISH OIL
     Dosage: UNK, 2X/DAY
     Dates: start: 20150409

REACTIONS (4)
  - Immunosuppressant drug level increased [Recovering/Resolving]
  - Pyrexia [Recovering/Resolving]
  - Transplant rejection [Unknown]
  - Diabetes mellitus [Unknown]

NARRATIVE: CASE EVENT DATE: 2015
